FAERS Safety Report 8548914 (Version 4)
Quarter: 2013Q1

REPORT INFORMATION
  Report Type: Spontaneous
  Country: JP (occurrence: JP)
  Receive Date: 20120507
  Receipt Date: 20120927
  Transmission Date: 20140127
  Serious: Yes (Hospitalization, Other)
  Sender: FDA-Public Use
  Company Number: JP-ASTRAZENECA-2012SE27981

PATIENT
  Age: 78 Year
  Sex: Male
  Weight: 52 kg

DRUGS (2)
  1. ZOLADEX [Suspect]
     Indication: PROSTATE CANCER
     Route: 058
     Dates: start: 20110621, end: 20120425
  2. BICALUTAMIDE [Concomitant]
     Indication: PROSTATE CANCER
     Route: 048
     Dates: start: 20110517

REACTIONS (2)
  - Intra-abdominal haemorrhage [Recovering/Resolving]
  - Wound dehiscence [Recovered/Resolved]
